FAERS Safety Report 11873030 (Version 1)
Quarter: 2015Q4

REPORT INFORMATION
  Report Type: Spontaneous
  Country: US (occurrence: US)
  Receive Date: 20151228
  Receipt Date: 20151228
  Transmission Date: 20160305
  Serious: No
  Sender: FDA-Public Use
  Company Number: US-ALK ABELLO INC-1045941

PATIENT
  Age: 39 Year
  Sex: Female

DRUGS (13)
  1. ZANTAC [Concomitant]
     Active Substance: RANITIDINE HYDROCHLORIDE
     Route: 048
  2. CAT PELT, STANDARDIZED [Suspect]
     Active Substance: FELIS CATUS SKIN
  3. HOUSE DUST MITE, DERMATOPHAGOIDES FARINAE [Suspect]
     Active Substance: DERMATOPHAGOIDES FARINAE
  4. WHITE ASH POLLEN [Suspect]
     Active Substance: FRAXINUS AMERICANA POLLEN
  5. FEATHER MIX, CHICKEN/DUCK/GOOSE [Suspect]
     Active Substance: ANAS PLATYRHYNCHOS FEATHER\ANSER ANSER FEATHER\GALLUS GALLUS FEATHER
  6. JOHNSON GRASS POLLEN [Suspect]
     Active Substance: SORGHUM HALEPENSE POLLEN
  7. ALEVE [Concomitant]
     Active Substance: NAPROXEN SODIUM
     Route: 048
  8. POLLENS - WEEDS, CARELESS/PIGWEED MIX [Suspect]
     Active Substance: AMARANTHUS PALMERI POLLEN\AMARANTHUS RETROFLEXUS POLLEN
  9. ASPERGILLUS FUMIGATUS. [Suspect]
     Active Substance: ASPERGILLUS FUMIGATUS
  10. ALLERGENIC EXTRACT- COCKROACH PERIPLANETA AMERICANA. [Suspect]
     Active Substance: ALLERGENIC EXTRACT- COCKROACH PERIPLANETA AMERICANA
  11. BERMUDA GRASS, STANDARDIZED [Suspect]
     Active Substance: CYNODON DACTYLON POLLEN
  12. EASTERN COTTONWOOD POLLEN [Suspect]
     Active Substance: POPULUS DELTOIDES POLLEN
  13. HOUSE DUST MITE, DERMATOPHAGOIDES PTERONYSSINUS [Suspect]
     Active Substance: DERMATOPHAGOIDES PTERONYSSINUS

REACTIONS (2)
  - Erythema [None]
  - Swelling [None]

NARRATIVE: CASE EVENT DATE: 20150318
